FAERS Safety Report 4290616-8 (Version None)
Quarter: 2004Q1

REPORT INFORMATION
  Report Type: 
  Country: None (occurrence: None)
  Receive Date: 20040209
  Receipt Date: 20040130
  Transmission Date: 20041129
  Serious: Yes (Other)
  Sender: FDA-Public Use
  Company Number: 2004-02-0011

PATIENT
  Age: 47 Year
  Sex: Male
  Weight: 50 kg

DRUGS (7)
  1. REBETOL [Suspect]
     Indication: HEPATITIS C
     Dosage: 800 MG QD ORAL
     Route: 048
     Dates: start: 20020815, end: 20030601
  2. PEGASYS [Suspect]
     Indication: HEPATITIS C
     Dosage: QWK SC SUBCUTANEOUS
     Route: 058
     Dates: start: 20020815, end: 20030826
  3. AZULFIDINE TABLETS [Concomitant]
  4. ACC [Concomitant]
  5. FOSAMAX [Concomitant]
  6. OXYCODONE HCL [Concomitant]
  7. KATADOLON CAPSULES [Concomitant]

REACTIONS (1)
  - BONE MARROW DEPRESSION [None]
